FAERS Safety Report 20370897 (Version 1)
Quarter: 2022Q1

REPORT INFORMATION
  Report Type: Spontaneous
  Country: US (occurrence: US)
  Receive Date: 20220124
  Receipt Date: 20220124
  Transmission Date: 20220423
  Serious: Yes (Death, Other)
  Sender: FDA-Public Use
  Company Number: US-GLAXOSMITHKLINE-US2022GSK011805

PATIENT
  Sex: Female

DRUGS (8)
  1. ZANTAC [Suspect]
     Active Substance: RANITIDINE HYDROCHLORIDE
     Indication: Product used for unknown indication
     Dosage: UNK, OCCASIONAL
     Dates: start: 199701, end: 199912
  2. ZANTAC [Suspect]
     Active Substance: RANITIDINE HYDROCHLORIDE
     Dosage: UNK, AT LEAST 1-2 TIMES A MONTH
     Dates: start: 199701, end: 199912
  3. ZANTAC [Suspect]
     Active Substance: RANITIDINE HYDROCHLORIDE
     Indication: Product used for unknown indication
     Dosage: UNK, OCCASIONAL
     Dates: start: 199701, end: 199912
  4. ZANTAC [Suspect]
     Active Substance: RANITIDINE HYDROCHLORIDE
     Dosage: UNK, AT LEAST 1-2 TIMES A MONTH
     Dates: start: 199701, end: 199912
  5. RANITIDINE [Suspect]
     Active Substance: RANITIDINE
     Indication: Product used for unknown indication
     Dosage: UNK, OCCASIONAL
     Dates: start: 199701, end: 199912
  6. RANITIDINE [Suspect]
     Active Substance: RANITIDINE
     Dosage: UNK, AT LEAST 1-2 TIMES A MONTH
     Dates: start: 199701, end: 199912
  7. RANITIDINE [Suspect]
     Active Substance: RANITIDINE
     Indication: Product used for unknown indication
     Dosage: UNK, OCCASIONAL
     Dates: start: 199701, end: 199912
  8. RANITIDINE [Suspect]
     Active Substance: RANITIDINE
     Dosage: UNK, AT LEAST 1-2 TIMES A MONTH
     Dates: start: 199701, end: 199912

REACTIONS (1)
  - Colorectal cancer [Fatal]
